FAERS Safety Report 6830656-5 (Version None)
Quarter: 2010Q3

REPORT INFORMATION
  Report Type: 
  Country: None (occurrence: None)
  Receive Date: 20100712
  Receipt Date: 20100628
  Transmission Date: 20110219
  Serious: Yes (Hospitalization, Other)
  Sender: FDA-Public Use
  Company Number: US-BAYER-201011743NA

PATIENT
  Age: 24 Year
  Sex: Female
  Weight: 73 kg

DRUGS (17)
  1. YAZ [Suspect]
     Indication: ORAL CONTRACEPTION
     Route: 048
     Dates: start: 20071120, end: 20090501
  2. YAZ [Suspect]
     Route: 048
     Dates: start: 20090702, end: 20090802
  3. AZITHROMYCIN [Concomitant]
  4. PULMICORT [Concomitant]
  5. NAPROXEN [Concomitant]
  6. ZYBAN [Concomitant]
     Dosage: UNIT DOSE: 150 MG
     Route: 048
     Dates: start: 20080904, end: 20090408
  7. PHENERGAN [Concomitant]
     Route: 048
     Dates: start: 20080701, end: 20090401
  8. FIORICET [Concomitant]
     Indication: PAIN
     Dosage: 50-325-40MG
     Route: 048
     Dates: end: 20090408
  9. NATACHEW [Concomitant]
     Route: 048
     Dates: start: 20070717, end: 20090408
  10. TAMIFLU [Concomitant]
     Indication: VIRAL INFECTION
  11. TYLENOL-500 [Concomitant]
     Indication: VIRAL INFECTION
  12. ROBITUSSIN [Concomitant]
     Indication: VIRAL INFECTION
  13. AMOXICILLIN [Concomitant]
     Indication: VIRAL INFECTION
  14. PANTOPRAZOLE [Concomitant]
  15. SUMATRIPTAN SUCCINATE (IMITREX) [Concomitant]
     Indication: MIGRAINE
     Dates: start: 20080401
  16. PROFEN FORTE [Concomitant]
  17. TRAMADOL HCL [Concomitant]
     Dates: start: 20080216

REACTIONS (8)
  - ABDOMINAL PAIN UPPER [None]
  - ASTHENIA [None]
  - CHOLECYSTITIS [None]
  - CHOLELITHIASIS [None]
  - NAUSEA [None]
  - PANCREATITIS [None]
  - PYREXIA [None]
  - VOMITING [None]
